FAERS Safety Report 5809886-7 (Version None)
Quarter: 2008Q3

REPORT INFORMATION
  Report Type: 
  Country: None (occurrence: None)
  Receive Date: 20080715
  Receipt Date: 20080707
  Transmission Date: 20090109
  Serious: Yes (Death, Hospitalization, Other)
  Sender: FDA-Public Use
  Company Number: JP-BRISTOL-MYERS SQUIBB COMPANY-14235485

PATIENT
  Age: 68 Year
  Sex: Male

DRUGS (6)
  1. ENDOXAN TABS [Suspect]
     Indication: INTERSTITIAL LUNG DISEASE
     Route: 048
     Dates: start: 20050714, end: 20051122
  2. ENDOXAN TABS [Suspect]
     Indication: OFF LABEL USE
     Route: 048
     Dates: start: 20050714, end: 20051122
  3. ENDOXAN TABS [Suspect]
     Indication: DERMATOMYOSITIS
     Route: 048
     Dates: start: 20050714, end: 20051122
  4. PREDNISOLONE [Suspect]
     Indication: DERMATOMYOSITIS
     Dosage: 30MG04-UNK;12.5MG05-UNK;20MG05-UNK;12.5MGOCT05-UNK;18MG05-UNK;60MG17DEC05-UNK;40MG26DEC05-UNK
     Route: 048
     Dates: start: 20040101
  5. IMMUNE GLOBULIN (HUMAN) [Concomitant]
     Dates: start: 20050625
  6. PROGRAF [Concomitant]
     Dates: start: 20051206, end: 20051217

REACTIONS (5)
  - DYSPHONIA [None]
  - LUNG SQUAMOUS CELL CARCINOMA STAGE IV [None]
  - MALIGNANT NEOPLASM PROGRESSION [None]
  - MUSCULAR WEAKNESS [None]
  - RESPIRATORY FAILURE [None]
